FAERS Safety Report 5852207-4 (Version None)
Quarter: 2008Q3

REPORT INFORMATION
  Report Type: 
  Country: None (occurrence: None)
  Receive Date: 20080819
  Receipt Date: 20080804
  Transmission Date: 20090109
  Serious: Yes (Death)
  Sender: FDA-Public Use
  Company Number: KADN20080318

PATIENT
  Age: 52 Year
  Sex: Male

DRUGS (4)
  1. MORPHINE [Suspect]
     Indication: PAIN
     Dosage: ORAL
     Route: 048
     Dates: end: 20060101
  2. AMITRIPTYLINE HCL [Concomitant]
  3. DIAZEPAM [Concomitant]
  4. NAPROXEN [Concomitant]

REACTIONS (1)
  - DRUG TOXICITY [None]
